FAERS Safety Report 25062850 (Version 1)
Quarter: 2025Q1

REPORT INFORMATION
  Report Type: Spontaneous
  Country: US (occurrence: None)
  Receive Date: 20250310
  Receipt Date: 20250310
  Transmission Date: 20250409
  Serious: Yes (Life-Threatening, Disabling, Other)
  Sender: FDA-CTU
  Company Number: None

PATIENT
  Age: 34 Year
  Sex: Male
  Weight: 56.25 kg

DRUGS (7)
  1. GEODON [Suspect]
     Active Substance: ZIPRASIDONE HYDROCHLORIDE\ZIPRASIDONE MESYLATE
     Indication: Physical assault
  2. TRAZODONE [Suspect]
     Active Substance: TRAZODONE HYDROCHLORIDE
  3. SEROQUEL [Suspect]
     Active Substance: QUETIAPINE FUMARATE
  4. VITAMINS [Concomitant]
     Active Substance: VITAMINS
  5. LIDOCAINE [Concomitant]
     Active Substance: LIDOCAINE
  6. CAPCIN [Concomitant]
  7. PREBIOTIC [Concomitant]

REACTIONS (9)
  - Tardive dyskinesia [None]
  - Crying [None]
  - Sensory disturbance [None]
  - Gait disturbance [None]
  - Suspected product tampering [None]
  - Somnambulism [None]
  - Somnolence [None]
  - Sleep disorder [None]
  - Skin injury [None]

NARRATIVE: CASE EVENT DATE: 20241010
